FAERS Safety Report 7561461-2 (Version None)
Quarter: 2011Q2

REPORT INFORMATION
  Report Type: 
  Country: None (occurrence: None)
  Receive Date: 20110621
  Receipt Date: 20110513
  Transmission Date: 20111010
  Serious: Yes (Other)
  Sender: FDA-Public Use
  Company Number: US-UCBSA-033208

PATIENT
  Age: 28 Year
  Sex: Female

DRUGS (2)
  1. CERTOLIZUMAB PEGOL [Suspect]
     Indication: LINEAR IGA DISEASE
     Route: 058
  2. CERTOLIZUMAB PEGOL [Suspect]
     Indication: CROHN'S DISEASE
     Route: 058

REACTIONS (3)
  - DRUG EXPOSURE DURING PREGNANCY [None]
  - CAESAREAN SECTION [None]
  - BREAST FEEDING [None]
